FAERS Safety Report 11858963 (Version 1)
Quarter: 2015Q4

REPORT INFORMATION
  Report Type: Spontaneous
  Country: KR (occurrence: KR)
  Receive Date: 20151222
  Receipt Date: 20151222
  Transmission Date: 20160305
  Serious: Yes (Other)
  Sender: FDA-Public Use
  Company Number: KR-AMGEN-KORCT2015136507

PATIENT
  Age: 58 Year
  Sex: Female
  Weight: 51.9 kg

DRUGS (20)
  1. SEPTRIN [Concomitant]
     Active Substance: SULFAMETHOXAZOLE\TRIMETHOPRIM
     Dosage: 480 MG, UNK
     Route: 048
     Dates: start: 20150523, end: 20150529
  2. MUCOSTA [Concomitant]
     Active Substance: REBAMIPIDE
     Dosage: 300 MG, UNK
     Route: 048
     Dates: start: 20150523, end: 20150524
  3. MAXIPIME [Concomitant]
     Active Substance: CEFEPIME HYDROCHLORIDE
     Dosage: 6 G, UNK
     Route: 042
     Dates: start: 20150525, end: 20150526
  4. DOXORUBICIN [Concomitant]
     Active Substance: DOXORUBICIN
     Dosage: 86.5 MG, UNK
     Route: 042
     Dates: start: 20150523, end: 20150523
  5. LEXAPRO [Concomitant]
     Active Substance: ESCITALOPRAM OXALATE
     Dosage: 5 MG, UNK
     Route: 048
     Dates: start: 20150502
  6. CYCLOPHOSPHAMIDE. [Concomitant]
     Active Substance: CYCLOPHOSPHAMIDE
     Dosage: 1130 MG, UNK
     Route: 042
     Dates: start: 20150523, end: 20150523
  7. KYTRIL [Concomitant]
     Active Substance: GRANISETRON HYDROCHLORIDE
     Dosage: 1 MG, UNK
     Route: 048
     Dates: start: 20150523, end: 20150523
  8. GASTER [Concomitant]
     Active Substance: FAMOTIDINE
     Dosage: 40 MG, UNK
     Route: 042
     Dates: start: 20150523, end: 20150524
  9. FENTAMAX MAT [Concomitant]
     Dosage: 25 MCG, UNK
     Route: 042
     Dates: start: 20150524, end: 20150625
  10. VINCRISTINE [Concomitant]
     Active Substance: VINCRISTINE
     Dosage: 2 MG, UNK
     Route: 042
     Dates: start: 20150523, end: 20150523
  11. EMEND [Concomitant]
     Active Substance: APREPITANT
     Dosage: 150 MG, UNK
     Route: 042
     Dates: start: 20150523, end: 20150523
  12. MAGO [Concomitant]
     Dosage: 1500 MG, UNK
     Route: 048
     Dates: start: 20150523, end: 20150616
  13. STILNOX [Concomitant]
     Active Substance: ZOLPIDEM TARTRATE
     Dosage: 6.25 MG, UNK
     Route: 048
     Dates: start: 20150523, end: 20150529
  14. ULTRACET SEMI [Concomitant]
     Dosage: 500 MG, UNK
     Route: 048
     Dates: start: 20150523, end: 20150524
  15. MOTILIUM M [Concomitant]
     Dosage: 25.44 MG, UNK
     Route: 048
     Dates: start: 20150523, end: 20150527
  16. PREDNISOLONE. [Concomitant]
     Active Substance: PREDNISOLONE
     Dosage: 60 MG, UNK
     Route: 048
     Dates: start: 20150523, end: 20150527
  17. LYRICA [Concomitant]
     Active Substance: PREGABALIN
     Dosage: 75 MG, UNK
     Route: 048
     Dates: start: 20150524
  18. G-LASTA [Suspect]
     Active Substance: PEGFILGRASTIM
     Indication: FEBRILE NEUTROPENIA
     Dosage: 6 MG, 1X/3WEEKS
     Route: 058
     Dates: start: 20150524, end: 20150524
  19. MORPHINE SULFATE. [Concomitant]
     Active Substance: MORPHINE SULFATE
     Dosage: 5 MG, UNK
     Route: 042
     Dates: start: 20150527, end: 20150604
  20. AGIO [Concomitant]
     Dosage: 6 MG, UNK
     Route: 048
     Dates: start: 20150523, end: 20150610

REACTIONS (1)
  - Pyrexia [Recovered/Resolved]

NARRATIVE: CASE EVENT DATE: 20150531
